FAERS Safety Report 8097376-3 (Version None)
Quarter: 2012Q1

REPORT INFORMATION
  Report Type: 
  Country: None (occurrence: None)
  Receive Date: 20120128
  Receipt Date: 20110718
  Transmission Date: 20120608
  Serious: No
  Sender: FDA-Public Use
  Company Number: US-ABBOTT-11P-163-0839806-00

PATIENT
  Age: 58 Year
  Sex: Female

DRUGS (15)
  1. NOVOLOG [Concomitant]
     Indication: TYPE 2 DIABETES MELLITUS
     Dosage: BEFORE EACH MEAL
     Route: 058
     Dates: start: 20050101
  2. PROZAC [Concomitant]
     Indication: PROPHYLAXIS
  3. PROZAC [Concomitant]
     Indication: NERVOUS SYSTEM DISORDER
  4. VITAMIN D [Concomitant]
     Indication: HYPOVITAMINOSIS
     Route: 048
  5. PRILOSEC [Concomitant]
     Indication: GASTROOESOPHAGEAL REFLUX DISEASE
     Route: 048
  6. LANTUS [Concomitant]
     Indication: TYPE 2 DIABETES MELLITUS
     Dosage: EVERY MORNING
     Route: 058
     Dates: start: 20050101
  7. THEOPHYLLINE [Concomitant]
     Indication: ASTHMA
     Route: 048
  8. ASPIRIN [Concomitant]
     Indication: CARDIAC MURMUR
  9. ADVAIR DISKUS 100/50 [Concomitant]
     Indication: ASTHMA
     Dosage: 500/50 - ONE PUFF TWICE DAILY
     Route: 048
  10. CALCIUM WITH VITAMIN D [Concomitant]
     Indication: PRODUCT USED FOR UNKNOWN INDICATION
     Dosage: 630/500 -  ONE DAILY
     Route: 048
  11. HUMIRA [Suspect]
     Indication: PSORIASIS
     Dates: start: 20091101
  12. ALLEGRA [Concomitant]
     Indication: ASTHMA
     Route: 048
  13. SIMVASTATIN [Concomitant]
     Indication: PROPHYLAXIS
     Dosage: ONE AT NIGHT
  14. LISINOPRIL [Concomitant]
     Indication: BLOOD PRESSURE
     Route: 048
     Dates: start: 19740101
  15. WOMAN MULTIPLE VITAMIN [Concomitant]
     Indication: HYPOVITAMINOSIS
     Route: 048

REACTIONS (4)
  - BLOOD ZINC DECREASED [None]
  - PSORIASIS [None]
  - STRESS [None]
  - BLOOD GLUCOSE INCREASED [None]
